FAERS Safety Report 6147394-7 (Version None)
Quarter: 2009Q2

REPORT INFORMATION
  Report Type: 
  Country: None (occurrence: None)
  Receive Date: 20090408
  Receipt Date: 20090330
  Transmission Date: 20091009
  Serious: Yes (Other)
  Sender: FDA-Public Use
  Company Number: AT-PFIZER INC-2009174273

PATIENT

DRUGS (8)
  1. TRESLEEN [Suspect]
     Indication: DEPRESSION
     Dosage: UNK
     Route: 048
     Dates: start: 20080820, end: 20081201
  2. TRUXAL [Suspect]
     Indication: PSYCHOTIC DISORDER
     Dosage: 150 MG, 1X/DAY
     Route: 048
  3. SOLIAN [Concomitant]
  4. SEROQUEL [Concomitant]
  5. SIMVASTATIN [Concomitant]
  6. MAGNESIUM CARBONATE [Concomitant]
  7. NULYTELY [Concomitant]
  8. DOMINAL FORTE [Concomitant]
     Indication: PSYCHOTIC DISORDER
     Dosage: 160 MG, 1X/DAY

REACTIONS (2)
  - DRUG INTERACTION [None]
  - URINARY RETENTION [None]
